FAERS Safety Report 11799871 (Version 1)
Quarter: 2015Q4

REPORT INFORMATION
  Report Type: Report from Study
  Country: KR (occurrence: KR)
  Receive Date: 20151203
  Receipt Date: 20151203
  Transmission Date: 20160305
  Serious: Yes (Other)
  Sender: FDA-Public Use
  Company Number: KR-BAXTER-2015BAX064429

PATIENT
  Sex: Female

DRUGS (11)
  1. CARBOPLATIN. [Suspect]
     Active Substance: CARBOPLATIN
     Indication: RHABDOID TUMOUR
     Route: 042
  2. VINCRISTINE [Suspect]
     Active Substance: VINCRISTINE
     Indication: RHABDOID TUMOUR
     Dosage: ON DAY 0,7, 14 AND 21
     Route: 042
  3. EPIRUBICIN [Concomitant]
     Active Substance: EPIRUBICIN
     Indication: RHABDOID TUMOUR
     Route: 042
  4. IFOSFAMIDE. [Concomitant]
     Active Substance: IFOSFAMIDE
     Indication: DISEASE PROGRESSION
  5. ENDOXAN 500MG INJ. (CYCLOPHOSPHAMIDE) [Suspect]
     Active Substance: CYCLOPHOSPHAMIDE
     Indication: RHABDOID TUMOUR
     Route: 042
  6. CISPLATIN. [Concomitant]
     Active Substance: CISPLATIN
     Indication: RHABDOID TUMOUR
     Route: 042
  7. CISPLATIN. [Concomitant]
     Active Substance: CISPLATIN
     Indication: DISEASE PROGRESSION
  8. ETOPOSIDE. [Suspect]
     Active Substance: ETOPOSIDE
     Indication: RHABDOID TUMOUR
     Route: 042
  9. EPIRUBICIN [Concomitant]
     Active Substance: EPIRUBICIN
     Indication: DISEASE PROGRESSION
  10. ACTINOMYCIN D [Suspect]
     Active Substance: DACTINOMYCIN
     Indication: RHABDOID TUMOUR
     Dosage: ON DAY 0 TO 2 AND 14 TO 16
     Route: 042
  11. IFOSFAMIDE. [Concomitant]
     Active Substance: IFOSFAMIDE
     Indication: RHABDOID TUMOUR
     Route: 042

REACTIONS (2)
  - No therapeutic response [Not Recovered/Not Resolved]
  - Disease progression [Not Recovered/Not Resolved]
